FAERS Safety Report 21106578 (Version 2)
Quarter: 2022Q3

REPORT INFORMATION
  Report Type: Spontaneous
  Country: RU (occurrence: RU)
  Receive Date: 20220720
  Receipt Date: 20220802
  Transmission Date: 20221026
  Serious: Yes (Other)
  Sender: FDA-Public Use
  Company Number: RU-NOVARTISPH-NVSC2022RU162237

PATIENT
  Sex: Male

DRUGS (13)
  1. CARVEDILOL [Suspect]
     Active Substance: CARVEDILOL
     Indication: Cardiac failure chronic
     Dosage: 25 MG, QD
     Route: 048
  2. OMEPRAZOLE [Suspect]
     Active Substance: OMEPRAZOLE
     Indication: Cardiac failure chronic
     Dosage: 40 MG, QD
     Route: 048
  3. TORSEMIDE [Suspect]
     Active Substance: TORSEMIDE
     Indication: Cardiac failure chronic
     Dosage: 10 MG, QD
     Route: 048
  4. SPIRONOLACTONE [Suspect]
     Active Substance: SPIRONOLACTONE
     Indication: Cardiac failure chronic
     Dosage: 200 MG, QD
     Route: 048
  5. SILODOSIN [Suspect]
     Active Substance: SILODOSIN
     Indication: Cardiac failure chronic
     Dosage: 8 MG, QD
     Route: 048
  6. AMIODARONE [Suspect]
     Active Substance: AMIODARONE
     Indication: Cardiac failure chronic
     Dosage: 200 MG, QD
     Route: 048
  7. PERINDOPRIL [Suspect]
     Active Substance: PERINDOPRIL
     Indication: Cardiac failure chronic
     Dosage: 4 MG, QD
     Route: 048
  8. RANOLAZINE [Suspect]
     Active Substance: RANOLAZINE
     Indication: Cardiac failure chronic
     Dosage: 1000 MG, QD
     Route: 048
  9. FOLIC ACID [Suspect]
     Active Substance: FOLIC ACID
     Indication: Cardiac failure chronic
     Dosage: 6 MG, QD
     Route: 048
  10. CLOPIDOGREL [Concomitant]
     Active Substance: CLOPIDOGREL BISULFATE
     Indication: Embolism venous
     Dosage: 75 MG, QD
     Route: 065
  11. CLOPIDOGREL [Concomitant]
     Active Substance: CLOPIDOGREL BISULFATE
     Indication: Vascular stent thrombosis
  12. APIXABAN [Concomitant]
     Active Substance: APIXABAN
     Indication: Product used for unknown indication
     Dosage: 5 MG, QD
     Route: 065
  13. EPOETIN ALFA [Concomitant]
     Active Substance: ERYTHROPOIETIN
     Indication: Anaemia
     Dosage: UNK
     Route: 065

REACTIONS (4)
  - Urinary retention [Recovered/Resolved]
  - Cardiac failure chronic [Unknown]
  - Disease progression [Unknown]
  - Product use in unapproved indication [Unknown]
